FAERS Safety Report 9170563 (Version 1)
Quarter: 2013Q1

REPORT INFORMATION
  Report Type: Spontaneous
  Country: US (occurrence: US)
  Receive Date: 20130319
  Receipt Date: 20130319
  Transmission Date: 20140127
  Serious: No
  Sender: FDA-Public Use
  Company Number: US-009507513-1303USA008565

PATIENT
  Sex: Male

DRUGS (6)
  1. PEG-INTRON [Suspect]
     Indication: HEPATITIS C
     Dosage: REDIPEN
     Dates: start: 20121001, end: 20121205
  2. PEG-INTRON [Suspect]
     Dosage: REDIPEN
     Dates: start: 20130315
  3. REBETOL [Suspect]
     Indication: HEPATITIS C
     Dosage: UNK
     Dates: start: 20121001, end: 20121205
  4. REBETOL [Suspect]
     Dosage: UNK
     Dates: start: 20130315
  5. TELAPREVIR [Suspect]
     Indication: HEPATITIS C
     Dosage: UNK
     Dates: start: 20121001, end: 20121205
  6. TELAPREVIR [Suspect]
     Dosage: UNK
     Dates: start: 20130315

REACTIONS (4)
  - Musculoskeletal disorder [Unknown]
  - Infection [Unknown]
  - Pyrexia [Unknown]
  - Pain [Unknown]
